FAERS Safety Report 17579155 (Version 1)
Quarter: 2020Q1

REPORT INFORMATION
  Report Type: Spontaneous
  Country: US (occurrence: US)
  Receive Date: 20200325
  Receipt Date: 20200325
  Transmission Date: 20200409
  Serious: No
  Sender: FDA-Public Use
  Company Number: US-ELI_LILLY_AND_COMPANY-US202003009147

PATIENT
  Sex: Male

DRUGS (8)
  1. HUMALOG [Suspect]
     Active Substance: INSULIN LISPRO
     Dosage: 14 U, EACH EVENING (AT SUPPER)
     Route: 058
     Dates: start: 201802
  2. HUMALOG [Suspect]
     Active Substance: INSULIN LISPRO
     Dosage: 14 U, EACH EVENING (AT SUPPER)
     Route: 058
     Dates: start: 201802
  3. HUMALOG [Suspect]
     Active Substance: INSULIN LISPRO
     Indication: TYPE 2 DIABETES MELLITUS
     Dosage: 10 U, EACH MORNING
     Route: 058
     Dates: start: 201802
  4. HUMALOG [Suspect]
     Active Substance: INSULIN LISPRO
     Dosage: UNK UNK, UNKNOWN
     Route: 058
     Dates: start: 2011
  5. HUMALOG [Suspect]
     Active Substance: INSULIN LISPRO
     Indication: TYPE 2 DIABETES MELLITUS
     Dosage: 10 U, EACH MORNING
     Route: 058
     Dates: start: 201802
  6. HUMALOG [Suspect]
     Active Substance: INSULIN LISPRO
     Dosage: 12 U, DAILY (NOON)
     Route: 058
     Dates: start: 201802
  7. HUMALOG [Suspect]
     Active Substance: INSULIN LISPRO
     Dosage: 12 U, DAILY (NOON)
     Route: 058
     Dates: start: 201802
  8. TOUJEO [Concomitant]
     Active Substance: INSULIN GLARGINE
     Indication: TYPE 2 DIABETES MELLITUS
     Dosage: 30 U, EACH EVENING (NIGHT)

REACTIONS (4)
  - Injection site haemorrhage [Unknown]
  - Road traffic accident [Unknown]
  - Blood glucose increased [Unknown]
  - Blood glucose decreased [Unknown]
